FAERS Safety Report 10433701 (Version 1)
Quarter: 2014Q3

REPORT INFORMATION
  Report Type: Spontaneous
  Country: PL (occurrence: PL)
  Receive Date: 20140905
  Receipt Date: 20140905
  Transmission Date: 20150326
  Serious: Yes (Life-Threatening, Hospitalization)
  Sender: FDA-Public Use
  Company Number: PHHY2014PL108948

PATIENT
  Sex: Female

DRUGS (3)
  1. KLIMICIN [Suspect]
     Active Substance: CLINDAMYCIN PHOSPHATE
     Indication: POSTPARTUM SEPSIS
     Dosage: 1800 MG, UNK
     Route: 042
     Dates: start: 20140123, end: 20140126
  2. BIODACYNA [Suspect]
     Active Substance: AMIKACIN SULFATE
     Indication: POSTPARTUM SEPSIS
     Dosage: 1 G, UNK
     Route: 042
     Dates: start: 20140123, end: 20140126
  3. BIOTAKSYM [Suspect]
     Active Substance: CEFOTAXIME SODIUM
     Indication: POSTPARTUM SEPSIS
     Dosage: 6 G, UNK
     Route: 042
     Dates: start: 20140123, end: 20140126

REACTIONS (1)
  - Bradycardia [Recovered/Resolved]
